FAERS Safety Report 21728341 (Version 2)
Quarter: 2023Q1

REPORT INFORMATION
  Report Type: Spontaneous
  Country: US (occurrence: US)
  Receive Date: 20221214
  Receipt Date: 20230210
  Transmission Date: 20230418
  Serious: No
  Sender: FDA-Public Use
  Company Number: US-PFIZER INC-PV202200122673

PATIENT
  Age: 64 Year
  Sex: Female

DRUGS (1)
  1. CIBINQO [Suspect]
     Active Substance: ABROCITINIB
     Indication: Lichen sclerosus
     Dosage: UNK
     Route: 048

REACTIONS (4)
  - Off label use [Unknown]
  - Herpes virus infection [Unknown]
  - Gastrooesophageal reflux disease [Unknown]
  - Migraine [Unknown]
